FAERS Safety Report 6927450-3 (Version None)
Quarter: 2010Q3

REPORT INFORMATION
  Report Type: 
  Country: None (occurrence: None)
  Receive Date: 20100817
  Receipt Date: 20100805
  Transmission Date: 20110219
  Serious: Yes (Hospitalization)
  Sender: FDA-Public Use
  Company Number: JP-JNJFOC-20100402062

PATIENT
  Sex: Male
  Weight: 72 kg

DRUGS (13)
  1. REMICADE [Suspect]
     Indication: CROHN'S DISEASE
     Route: 042
  2. REMICADE [Suspect]
     Dosage: 30 INFUSIONS ON UNSPECIFIED DATES
     Route: 042
  3. REMICADE [Suspect]
     Dosage: 33RD INFUSION
     Route: 042
  4. REMICADE [Suspect]
     Route: 042
  5. FAMOTIDINE [Concomitant]
     Indication: PROPHYLAXIS AGAINST GASTROINTESTINAL ULCER
     Route: 048
  6. GASLON N [Concomitant]
     Indication: PROPHYLAXIS AGAINST GASTROINTESTINAL ULCER
     Route: 048
  7. GLAKAY [Concomitant]
     Indication: OSTEOPOROSIS PROPHYLAXIS
     Route: 048
  8. PENTASA [Concomitant]
     Indication: CROHN'S DISEASE
     Route: 048
  9. LAC-B [Concomitant]
     Indication: CROHN'S DISEASE
     Route: 048
  10. ACTONEL [Concomitant]
     Indication: OSTEOPOROSIS PROPHYLAXIS
     Route: 048
  11. PREDONINE [Concomitant]
     Indication: CROHN'S DISEASE
     Route: 048
  12. PREDONINE [Concomitant]
     Dosage: 60 MG DECREASED TO 11 MG
     Route: 048
  13. PREDONINE [Concomitant]
     Route: 048

REACTIONS (2)
  - ABDOMINAL DISCOMFORT [None]
  - DEMYELINATION [None]
